FAERS Safety Report 20864781 (Version 2)
Quarter: 2022Q2

REPORT INFORMATION
  Report Type: Spontaneous
  Country: BR (occurrence: BR)
  Receive Date: 20220524
  Receipt Date: 20220623
  Transmission Date: 20220721
  Serious: Yes (Other)
  Sender: FDA-Public Use
  Company Number: BR-UCBSA-2022028675

PATIENT
  Age: 43 Year
  Sex: Female

DRUGS (1)
  1. CIMZIA [Suspect]
     Active Substance: CERTOLIZUMAB PEGOL
     Indication: Spondylitis
     Dosage: 400 MILLIGRAM, MONTHLY (QM)
     Dates: start: 20210720, end: 20220117

REACTIONS (4)
  - Pharyngitis [Unknown]
  - Tuberculosis [Recovering/Resolving]
  - Sinusitis [Unknown]
  - Tuberculin test positive [Unknown]

NARRATIVE: CASE EVENT DATE: 20220419
